FAERS Safety Report 6576671-0 (Version None)
Quarter: 2010Q1

REPORT INFORMATION
  Report Type: 
  Country: None (occurrence: None)
  Receive Date: 20100210
  Receipt Date: 20100203
  Transmission Date: 20100710
  Serious: Yes (Life-Threatening)
  Sender: FDA-Public Use
  Company Number: US-ASTRAZENECA-2004AP00711

PATIENT
  Age: 2 Month
  Sex: Female
  Weight: 4 kg

DRUGS (2)
  1. CHLOROPROCAINE HCL [Suspect]
     Indication: ANALGESIC THERAPY
     Dosage: GIVEN OVER 30 SECONDS, 4 ML, 30 MG/KG
     Route: 008
  2. GENERAL ANESTHETIC [Concomitant]
     Indication: ANAESTHESIA

REACTIONS (4)
  - BRADYCARDIA [None]
  - CARDIAC ARREST [None]
  - CARDIOTOXICITY [None]
  - DRUG ADMINISTRATION ERROR [None]
